FAERS Safety Report 5248939-1 (Version None)
Quarter: 2007Q1

REPORT INFORMATION
  Report Type: 
  Country: None (occurrence: None)
  Receive Date: 20070223
  Receipt Date: 20060920
  Transmission Date: 20070707
  Serious: No
  Sender: FDA-Public Use
  Company Number: 230602K06CAN

PATIENT
  Sex: Female

DRUGS (6)
  1. REBIF [Suspect]
     Indication: RELAPSING-REMITTING MULTIPLE SCLEROSIS
     Dates: start: 20050706
  2. BACLOFEN [Concomitant]
  3. OXYBUTYNIN/00538901/ [Concomitant]
  4. COTYLENOL [Concomitant]
  5. BISMUTH SUBSALICYLATE [Concomitant]
  6. CARBAMAZEPINE [Concomitant]

REACTIONS (1)
  - CONVULSION [None]
